FAERS Safety Report 4641177-2 (Version None)
Quarter: 2005Q2

REPORT INFORMATION
  Report Type: 
  Country: None (occurrence: None)
  Receive Date: 20050419
  Receipt Date: 20050419
  Transmission Date: 20051028
  Serious: Yes (Hospitalization)
  Sender: FDA-Public Use
  Company Number: None

PATIENT
  Age: 68 Year
  Sex: Female
  Weight: 81.6475 kg

DRUGS (3)
  1. CRESTOR [Suspect]
     Indication: DYSLIPIDAEMIA
     Dosage: 1 A DAY 40 MG
     Dates: start: 20040408
  2. CRESTOR [Suspect]
     Indication: DYSLIPIDAEMIA
     Dosage: 1 A DAY 40 MG
     Dates: start: 20040422
  3. GEMFIBROZIL [Suspect]
     Indication: BLOOD TRIGLYCERIDES
     Dosage: TWICE A DAY 600 MG
     Dates: start: 20010101, end: 20050123

REACTIONS (16)
  - ASTHENIA [None]
  - BLOOD CREATININE INCREASED [None]
  - CARDIAC ENZYMES INCREASED [None]
  - COUGH [None]
  - HEPATOCELLULAR DAMAGE [None]
  - HYPOCHLORAEMIA [None]
  - HYPOKALAEMIA [None]
  - HYPONATRAEMIA [None]
  - HYPOVOLAEMIA [None]
  - MYALGIA [None]
  - MYOPATHY TOXIC [None]
  - NAUSEA [None]
  - OEDEMA PERIPHERAL [None]
  - ORAL INTAKE REDUCED [None]
  - PYREXIA [None]
  - RENAL DISORDER [None]
